FAERS Safety Report 17299107 (Version 1)
Quarter: 2020Q1

REPORT INFORMATION
  Report Type: Spontaneous
  Country: CA (occurrence: CA)
  Receive Date: 20200121
  Receipt Date: 20200121
  Transmission Date: 20200409
  Serious: Yes (Life-Threatening, Hospitalization)
  Sender: FDA-Public Use
  Company Number: CA-JNJFOC-20200125671

PATIENT
  Age: 58 Year
  Sex: Male

DRUGS (4)
  1. TRAJENTA [Concomitant]
     Active Substance: LINAGLIPTIN
     Route: 048
  2. METFORMIN [Concomitant]
     Active Substance: METFORMIN HYDROCHLORIDE
     Route: 048
  3. INVOKANA [Suspect]
     Active Substance: CANAGLIFLOZIN
     Indication: DIABETES MELLITUS
     Route: 048
  4. GLICLAZIDE MR STADA [Concomitant]
     Route: 048

REACTIONS (3)
  - Septic shock [Recovering/Resolving]
  - Surgery [Recovering/Resolving]
  - Fournier^s gangrene [Recovering/Resolving]
